FAERS Safety Report 7503428-6 (Version None)
Quarter: 2011Q2

REPORT INFORMATION
  Report Type: 
  Country: None (occurrence: None)
  Receive Date: 20110525
  Receipt Date: 20110516
  Transmission Date: 20111010
  Serious: Yes (Hospitalization, Other)
  Sender: FDA-Public Use
  Company Number: US-ASTRAZENECA-2011SE30063

PATIENT
  Sex: Male

DRUGS (2)
  1. CRESTOR [Suspect]
     Dosage: CRESTOR
     Route: 048
  2. CRESTOR [Suspect]
     Dosage: GENERIC
     Route: 048

REACTIONS (3)
  - PAROSMIA [None]
  - NASAL DISCOMFORT [None]
  - STENT PLACEMENT [None]
